FAERS Safety Report 5755093-6 (Version None)
Quarter: 2008Q2

REPORT INFORMATION
  Report Type: 
  Country: None (occurrence: None)
  Receive Date: 20080602
  Receipt Date: 20080116
  Transmission Date: 20081010
  Serious: No
  Sender: FDA-Public Use
  Company Number: A0703635A

PATIENT
  Age: 38 Year
  Sex: Female

DRUGS (3)
  1. AMOXICILLIN + CLAVULANATE POTASSIUM [Suspect]
     Dosage: 875MG TWICE PER DAY
     Route: 048
     Dates: start: 20080108
  2. LAMICTAL [Suspect]
     Indication: DRUG USE FOR UNKNOWN INDICATION
     Dosage: 200MG PER DAY
     Route: 048
     Dates: start: 20071231
  3. UNKNOWN MEDICATION [Concomitant]

REACTIONS (2)
  - DRUG INTERACTION [None]
  - PRURITUS [None]
